FAERS Safety Report 4296045-5 (Version None)
Quarter: 2004Q1

REPORT INFORMATION
  Report Type: 
  Country: None (occurrence: None)
  Receive Date: 20040212
  Receipt Date: 20040206
  Transmission Date: 20041129
  Serious: Yes (Other)
  Sender: FDA-Public Use
  Company Number: 430002K04USA

PATIENT
  Age: 46 Year
  Sex: Female
  Weight: 110 kg

DRUGS (3)
  1. NOVANTRONE [Suspect]
     Indication: MULTIPLE SCLEROSIS
     Dosage: 28 MG, 1 IN 3 MONTHS, INTRAVENOUS
     Route: 042
     Dates: start: 20020301, end: 20030601
  2. ANTIHYPERTENSIVES [Concomitant]
  3. INTERFERON BETA [Concomitant]

REACTIONS (7)
  - ANXIETY [None]
  - CARDIOMYOPATHY [None]
  - EJECTION FRACTION DECREASED [None]
  - HEADACHE [None]
  - INJECTION SITE DISCOMFORT [None]
  - OEDEMA PERIPHERAL [None]
  - PALPITATIONS [None]
